FAERS Safety Report 9857423 (Version 6)
Quarter: 2014Q1

REPORT INFORMATION
  Report Type: Spontaneous
  Country: JP (occurrence: JP)
  Receive Date: 20140131
  Receipt Date: 20140317
  Transmission Date: 20141002
  Serious: Yes (Hospitalization, Other)
  Sender: FDA-Public Use
  Company Number: JP-ROCHE-1334613

PATIENT
  Age: 73 Year
  Sex: Male

DRUGS (2)
  1. BONVIVA [Suspect]
     Indication: OSTEOPOROSIS
     Dosage: THREE TIMES
     Route: 042
     Dates: start: 20131025, end: 20131225
  2. ONEALFA [Concomitant]
     Indication: OSTEOPOROSIS
     Route: 048
     Dates: start: 20131025

REACTIONS (5)
  - Oedema peripheral [Recovered/Resolved]
  - C-reactive protein increased [Recovering/Resolving]
  - White blood cell count increased [Recovering/Resolving]
  - Infection [Recovered/Resolved]
  - Myalgia [Recovered/Resolved]
